FAERS Safety Report 19375204 (Version 1)
Quarter: 2021Q2

REPORT INFORMATION
  Report Type: Spontaneous
  Country: US (occurrence: US)
  Receive Date: 20210604
  Receipt Date: 20210604
  Transmission Date: 20210717
  Serious: Yes (Other)
  Sender: FDA-Public Use
  Company Number: US-OTSUKA-2021_018456

PATIENT
  Age: 55 Year
  Sex: Female

DRUGS (1)
  1. REXULTI [Suspect]
     Active Substance: BREXPIPRAZOLE
     Indication: DEPRESSION
     Dosage: 1 MG, QD (AT BEDTIME)
     Route: 065

REACTIONS (4)
  - Inability to afford medication [Unknown]
  - Crying [Not Recovered/Not Resolved]
  - Product dose omission issue [Unknown]
  - Agitated depression [Not Recovered/Not Resolved]

NARRATIVE: CASE EVENT DATE: 20210527
